FAERS Safety Report 18729513 (Version 1)
Quarter: 2021Q1

REPORT INFORMATION
  Report Type: Spontaneous
  Country: US (occurrence: US)
  Receive Date: 20210112
  Receipt Date: 20210112
  Transmission Date: 20210419
  Serious: No
  Sender: FDA-Public Use
  Company Number: NVSC2021US004881

PATIENT
  Sex: Female

DRUGS (1)
  1. PROMACTA [Suspect]
     Active Substance: ELTROMBOPAG OLAMINE
     Indication: PRODUCT USED FOR UNKNOWN INDICATION
     Dosage: UNK (3 TIMES A WEEK)
     Route: 065

REACTIONS (4)
  - Dyspepsia [Unknown]
  - Ocular hyperaemia [Unknown]
  - Arthralgia [Unknown]
  - Headache [Unknown]
